FAERS Safety Report 16950786 (Version 6)
Quarter: 2022Q1

REPORT INFORMATION
  Report Type: Other
  Country: US (occurrence: None)
  Receive Date: 20191023
  Receipt Date: 20220319
  Transmission Date: 20220423
  Serious: Yes (Other)
  Sender: FDA-Public Use
  Company Number: US-ROCHE-2440573

PATIENT
  Age: 46 Year
  Sex: Female

DRUGS (1)
  1. OCREVUS [Suspect]
     Active Substance: OCRELIZUMAB
     Indication: Relapsing-remitting multiple sclerosis
     Dosage: DATE OF TREATMENT: 16/OCT/2017, 18/APR/2018, 18/OCT/2018, 18/APR/2019 ?DOT 20/05/2020
     Route: 058
     Dates: start: 20170418

REACTIONS (5)
  - Urinary tract infection [Recovered/Resolved]
  - Neurogenic bladder [Unknown]
  - Nephrolithiasis [Recovered/Resolved]
  - Staphylococcal infection [Unknown]
  - Kidney infection [Unknown]

NARRATIVE: CASE EVENT DATE: 20191001
